FAERS Safety Report 15601826 (Version 1)
Quarter: 2018Q4

REPORT INFORMATION
  Report Type: Spontaneous
  Country: US (occurrence: US)
  Receive Date: 20181105
  Receipt Date: 20181105
  Transmission Date: 20190205
  Serious: No
  Sender: FDA-Public Use
  Company Number: None

PATIENT
  Age: 22 Year
  Sex: Female
  Weight: 43.54 kg

DRUGS (4)
  1. FAMOTIDINE 40MG/5ML [Suspect]
     Active Substance: FAMOTIDINE
     Indication: CEREBRAL PALSY
     Dosage: 5 ML IN G-TUBE TWICE DAILY?
     Dates: start: 201805
  2. FAMOTIDINE 40MG/5ML [Suspect]
     Active Substance: FAMOTIDINE
     Indication: GASTROOESOPHAGEAL REFLUX DISEASE
     Dosage: 5 ML IN G-TUBE TWICE DAILY?
     Dates: start: 201805
  3. FAMOTIDINE 40MG/5ML [Suspect]
     Active Substance: FAMOTIDINE
     Indication: HIATUS HERNIA
     Dosage: 5 ML IN G-TUBE TWICE DAILY?
     Dates: start: 201805
  4. FAMOTIDINE 40MG/5ML [Suspect]
     Active Substance: FAMOTIDINE

REACTIONS (2)
  - Product colour issue [None]
  - Product complaint [None]

NARRATIVE: CASE EVENT DATE: 20180501
